FAERS Safety Report 16112612 (Version 1)
Quarter: 2019Q1

REPORT INFORMATION
  Report Type: Spontaneous
  Country: US (occurrence: US)
  Receive Date: 20190221
  Receipt Date: 20190221
  Transmission Date: 20190418
  Serious: Yes (Death)
  Sender: FDA-Public Use
  Company Number: None

PATIENT
  Age: 62 Year
  Sex: Female
  Weight: 45.81 kg

DRUGS (1)
  1. REPATHA [Suspect]
     Active Substance: EVOLOCUMAB
     Indication: TYPE IIA HYPERLIPIDAEMIA
     Dosage: ADMINISTER 3.5ML SUBCUTANEOUSLY EVERY MONTH OVER 9 MINUTES BY USING THE SINGLE-USE ON-BODY INFUSER
     Route: 058
     Dates: start: 201804

REACTIONS (1)
  - Death [None]
